FAERS Safety Report 25474190 (Version 1)
Quarter: 2025Q2

REPORT INFORMATION
  Report Type: Spontaneous
  Country: US (occurrence: US)
  Receive Date: 20250624
  Receipt Date: 20250624
  Transmission Date: 20250717
  Serious: Yes (Other)
  Sender: PURDUE
  Company Number: US-PURDUE PHARMA-USA-2025-0318385

PATIENT

DRUGS (1)
  1. OXYCONTIN [Suspect]
     Active Substance: OXYCODONE HYDROCHLORIDE
     Indication: Pain
     Dosage: UNK UNK, TID (90 PILLS EVERY 30 DAYS)
     Route: 048

REACTIONS (1)
  - Drug dependence [Recovered/Resolved]
